FAERS Safety Report 16493389 (Version 2)
Quarter: 2020Q4

REPORT INFORMATION
  Report Type: Report from Study
  Country: US (occurrence: US)
  Receive Date: 20190628
  Receipt Date: 20201109
  Transmission Date: 20210113
  Serious: Yes (Death, Hospitalization)
  Sender: FDA-Public Use
  Company Number: US-CELGENEUS-USA-20180204564

PATIENT
  Age: 69 Year
  Sex: Female
  Weight: 74.91 kg

DRUGS (1)
  1. VIDAZA [Suspect]
     Active Substance: AZACITIDINE
     Indication: ACUTE MYELOID LEUKAEMIA
     Dosage: 140 MILLIGRAM
     Route: 058
     Dates: start: 20180108, end: 20180209

REACTIONS (2)
  - Acute respiratory distress syndrome [Recovered/Resolved]
  - Dyspnoea [Fatal]

NARRATIVE: CASE EVENT DATE: 20180110
